FAERS Safety Report 24457776 (Version 1)
Quarter: 2024Q4

REPORT INFORMATION
  Report Type: Report from Study
  Country: US (occurrence: US)
  Receive Date: 20241018
  Receipt Date: 20241018
  Transmission Date: 20250114
  Serious: No
  Sender: ROCHE
  Company Number: US-ROCHE-3426800

PATIENT
  Age: 46 Year
  Sex: Female

DRUGS (4)
  1. CATHFLO ACTIVASE [Suspect]
     Active Substance: ALTEPLASE
     Indication: Device related thrombosis
     Dosage: VIAL, DATE OF SERVICE: 17/SEP/2023
     Route: 065
  2. CATHFLO ACTIVASE [Suspect]
     Active Substance: ALTEPLASE
     Indication: Acute lymphocytic leukaemia
  3. CATHFLO ACTIVASE [Suspect]
     Active Substance: ALTEPLASE
     Indication: Non-Hodgkin^s lymphoma
  4. CATHFLO ACTIVASE [Suspect]
     Active Substance: ALTEPLASE
     Indication: Mantle cell lymphoma

REACTIONS (2)
  - Off label use [Unknown]
  - No adverse event [Unknown]
